FAERS Safety Report 5974855-3 (Version None)
Quarter: 2008Q4

REPORT INFORMATION
  Report Type: 
  Country: None (occurrence: None)
  Receive Date: 20081202
  Receipt Date: 20081126
  Transmission Date: 20090506
  Serious: Yes (Hospitalization)
  Sender: FDA-Public Use
  Company Number: US-PFIZER INC-2008085789

PATIENT
  Age: 46 Year
  Sex: Female
  Weight: 177 kg

DRUGS (15)
  1. GABAPENTIN [Suspect]
     Indication: DIABETIC NEUROPATHY
     Dates: start: 20030224
  2. FUROSEMIDE [Suspect]
     Indication: HYPERTENSION
     Dosage: DAILY DOSE:80MG
     Dates: start: 20030708
  3. OMEPRAZOLE [Concomitant]
     Indication: GASTROOESOPHAGEAL REFLUX DISEASE
     Dosage: DAILY DOSE:20MG
  4. LISINOPRIL [Concomitant]
     Indication: HYPERTENSION
     Dosage: DAILY DOSE:40MG
  5. HYDROCHLOROTHIAZIDE [Concomitant]
     Indication: HYPERTENSION
     Dosage: DAILY DOSE:25MG
     Dates: start: 20021018
  6. ATORVASTATIN CALCIUM [Concomitant]
     Indication: HYPERLIPIDAEMIA
     Dosage: DAILY DOSE:10MG
     Dates: start: 20021018
  7. SALMETEROL [Concomitant]
     Indication: ASTHMA
     Route: 055
  8. FLUTICASONE PROPIONATE [Concomitant]
     Indication: ASTHMA
     Route: 055
  9. ALBUTEROL [Concomitant]
     Indication: ASTHMA
     Route: 055
  10. METFORMIN HCL [Concomitant]
     Indication: TYPE 2 DIABETES MELLITUS
     Dates: start: 20040120
  11. INSULIN LISPRO [Concomitant]
     Indication: TYPE 2 DIABETES MELLITUS
     Dates: start: 20070309
  12. OXYCODONE HCL [Concomitant]
     Indication: BACK PAIN
     Dates: start: 20071211
  13. OXYCODONE HCL [Concomitant]
     Indication: OSTEOARTHRITIS
  14. ALPRAZOLAM [Concomitant]
     Indication: GENERALISED ANXIETY DISORDER
  15. VENLAFAXINE HCL [Concomitant]
     Indication: DEPRESSION

REACTIONS (19)
  - ANAEMIA [None]
  - BLOOD CREATININE INCREASED [None]
  - CARBON DIOXIDE DECREASED [None]
  - CHEST PAIN [None]
  - DEAFNESS BILATERAL [None]
  - DRUG TOXICITY [None]
  - DYSPNOEA [None]
  - HAEMOGLOBIN DECREASED [None]
  - HALLUCINATION [None]
  - HEADACHE [None]
  - HYPERHIDROSIS [None]
  - MENTAL DISORDER [None]
  - MYOCLONUS [None]
  - PLATELET COUNT INCREASED [None]
  - PNEUMONIA [None]
  - RENAL FAILURE ACUTE [None]
  - URINARY TRACT INFECTION [None]
  - VISION BLURRED [None]
  - WHITE BLOOD CELL COUNT INCREASED [None]
